FAERS Safety Report 13689654 (Version 2)
Quarter: 2017Q3

REPORT INFORMATION
  Report Type: Spontaneous
  Country: KR (occurrence: KR)
  Receive Date: 20170626
  Receipt Date: 20170710
  Transmission Date: 20171127
  Serious: Yes (Other)
  Sender: FDA-Public Use
  Company Number: KR-BAYER-2017-115829

PATIENT
  Age: 75 Year
  Sex: Male

DRUGS (4)
  1. SORAFENIB (RAF KINASE INHIBITOR) [Suspect]
     Active Substance: SORAFENIB
     Indication: HEPATOCELLULAR CARCINOMA
     Dosage: UNK
     Route: 048
     Dates: start: 201512, end: 201603
  2. TACE [Concomitant]
     Active Substance: CHLOROTRIANISENE
  3. SORAFENIB (RAF KINASE INHIBITOR) [Suspect]
     Active Substance: SORAFENIB
     Indication: HEPATOCELLULAR CARCINOMA
     Dosage: UNK
     Route: 048
  4. TEGAFUR [Concomitant]
     Active Substance: TEGAFUR
     Indication: HEPATOCELLULAR CARCINOMA
     Dosage: UNK

REACTIONS (7)
  - Metastases to lung [Recovered/Resolved]
  - Hepatocellular carcinoma [Recovered/Resolved]
  - Thrombocytopenia [None]
  - Drug ineffective [Recovered/Resolved]
  - Metastases to lymph nodes [Recovering/Resolving]
  - Metastases to peritoneum [Recovering/Resolving]
  - General physical health deterioration [None]

NARRATIVE: CASE EVENT DATE: 201603
